FAERS Safety Report 24661306 (Version 2)
Quarter: 2024Q4

REPORT INFORMATION
  Report Type: Report from Study
  Country: US (occurrence: US)
  Receive Date: 20241125
  Receipt Date: 20241212
  Transmission Date: 20250115
  Serious: Yes (Hospitalization, Other)
  Sender: AMGEN
  Company Number: US-AMGEN-USASP2024232357

PATIENT
  Age: 2 Year
  Sex: Male

DRUGS (2)
  1. ACTIMMUNE [Suspect]
     Active Substance: INTERFERON GAMMA-1B
     Indication: Neutrophil function disorder
     Dosage: 0.13 MILLILITER, 3 TIMES/WK PACKAGING SIZE: 100MCG/.5
     Route: 058
     Dates: start: 202407
  2. ACTIMMUNE [Suspect]
     Active Substance: INTERFERON GAMMA-1B
     Indication: Chronic granulomatous disease
     Dosage: 26 MICROGRAM (INJECT 26 MCG SUBCUTANEOUSLY MONDAY, WEDNESDAY, AND FRIDAY)
     Route: 058

REACTIONS (1)
  - Bone marrow transplant [Unknown]
